FAERS Safety Report 6898170-9 (Version None)
Quarter: 2010Q3

REPORT INFORMATION
  Report Type: 
  Country: None (occurrence: None)
  Receive Date: 20100802
  Receipt Date: 20070830
  Transmission Date: 20110219
  Serious: Yes (Other)
  Sender: FDA-Public Use
  Company Number: US-PFIZER INC-2007074085

PATIENT
  Sex: Female
  Weight: 55.8 kg

DRUGS (12)
  1. LYRICA [Suspect]
     Indication: ARTHRITIS
     Route: 048
     Dates: start: 20051101, end: 20070604
  2. PROVIGIL [Concomitant]
     Indication: FATIGUE
     Route: 048
     Dates: start: 20051101
  3. VICODIN [Concomitant]
     Dates: start: 19990101
  4. EFFEXOR XR [Concomitant]
     Dates: start: 19990101
  5. XANAX [Concomitant]
     Dates: start: 20030101
  6. WELLBUTRIN XL [Concomitant]
     Dates: start: 20050101
  7. TRAMADOL HYDROCHLORIDE [Concomitant]
     Dates: start: 20030101
  8. VIVELLE-DOT [Concomitant]
  9. MONTELUKAST [Concomitant]
     Dates: start: 20060101
  10. NASONEX [Concomitant]
     Dates: start: 20060101
  11. HYDROCHLOROTHIAZIDE [Concomitant]
     Dates: start: 20070201
  12. ALL OTHER THERAPEUTIC PRODUCTS [Concomitant]
     Dates: end: 20070125

REACTIONS (1)
  - BLOOD CREATINE PHOSPHOKINASE INCREASED [None]
